FAERS Safety Report 7715634-6 (Version None)
Quarter: 2011Q3

REPORT INFORMATION
  Report Type: 
  Country: None (occurrence: None)
  Receive Date: 20110829
  Receipt Date: 20110816
  Transmission Date: 20111222
  Serious: Yes (Other)
  Sender: FDA-Public Use
  Company Number: BR-SANOFI-AVENTIS-2011SA006694

PATIENT
  Age: 28 Year
  Sex: Female

DRUGS (8)
  1. ARAVA [Suspect]
     Indication: RHEUMATOID ARTHRITIS
     Route: 048
     Dates: start: 20100501, end: 20110125
  2. ACETAMINOPHEN [Concomitant]
  3. ARAVA [Suspect]
     Route: 048
  4. LANSOPRAZOLE [Concomitant]
     Dosage: 1 TABLET PER DAY IN MORNING AFTER BREAKFAST
     Route: 048
  5. AMLODIPINE [Concomitant]
     Indication: HYPERTENSION
  6. ALL OTHER THERAPEUTIC PRODUCTS [Concomitant]
     Route: 048
  7. DICLOFENAC SODIUM [Concomitant]
     Dosage: 1 TABLET PER DAY IN MORNING AFTER BREAKFAST
     Route: 048
  8. HYDROXYCHLOROQUINE [Concomitant]
     Dosage: 1 TABLET PER DAY IN MORNING AFTER BREAKFAST
     Route: 048

REACTIONS (2)
  - NAUSEA [None]
  - ABORTION SPONTANEOUS [None]
